FAERS Safety Report 6739684-1 (Version None)
Quarter: 2010Q2

REPORT INFORMATION
  Report Type: 
  Country: None (occurrence: None)
  Receive Date: 20100525
  Receipt Date: 20100430
  Transmission Date: 20101027
  Serious: Yes (Other)
  Sender: FDA-Public Use
  Company Number: US-AMGEN-QUU406996

PATIENT
  Sex: Female
  Weight: 93.5 kg

DRUGS (4)
  1. NPLATE [Suspect]
     Indication: IDIOPATHIC THROMBOCYTOPENIC PURPURA
     Dates: start: 20090603, end: 20100114
  2. IMMU-G [Concomitant]
     Dates: start: 20090420
  3. RITUXIMAB [Concomitant]
     Dates: start: 20090420
  4. CAMPATH [Concomitant]
     Dates: start: 20040601

REACTIONS (1)
  - DRUG INEFFECTIVE [None]
